FAERS Safety Report 5245013-5 (Version None)
Quarter: 2007Q1

REPORT INFORMATION
  Report Type: 
  Country: None (occurrence: None)
  Receive Date: 20070221
  Receipt Date: 20070221
  Transmission Date: 20070707
  Serious: Yes (Other)
  Sender: FDA-Public Use
  Company Number: None

PATIENT
  Age: 63 Year
  Sex: Male
  Weight: 91 kg

DRUGS (2)
  1. MIOCHOL-E [Suspect]
     Indication: CATARACT OPERATION
     Dosage: 20 MG  ONE TIME
     Dates: start: 20070130, end: 20070130
  2. PERIFIX FILTER  0.2 MICRON  BBRAUN -PACKAGED W/ MIOCHOL- [Suspect]

REACTIONS (1)
  - PHARMACEUTICAL PRODUCT COMPLAINT [None]
